FAERS Safety Report 6717687-0 (Version None)
Quarter: 2010Q2

REPORT INFORMATION
  Report Type: 
  Country: None (occurrence: None)
  Receive Date: 20100507
  Receipt Date: 20100507
  Transmission Date: 20101027
  Serious: Yes (Other)
  Sender: FDA-Public Use
  Company Number: None

PATIENT
  Age: 31 Year
  Sex: Female
  Weight: 71.6683 kg

DRUGS (1)
  1. DYSPORT [Suspect]
     Indication: SKIN WRINKLING

REACTIONS (1)
  - EYELID PTOSIS [None]
